FAERS Safety Report 6726442-7 (Version None)
Quarter: 2010Q2

REPORT INFORMATION
  Report Type: 
  Country: None (occurrence: None)
  Receive Date: 20100514
  Receipt Date: 20100504
  Transmission Date: 20101027
  Serious: Yes (Hospitalization, Other)
  Sender: FDA-Public Use
  Company Number: BE-ABBOTT-10P-013-0634284-00

PATIENT
  Sex: Male
  Weight: 65 kg

DRUGS (3)
  1. HUMIRA [Suspect]
     Indication: PSORIATIC ARTHROPATHY
     Route: 058
     Dates: start: 20090325, end: 20100201
  2. HUMIRA [Suspect]
     Indication: ANKYLOSING SPONDYLITIS
  3. METHOTREXATE [Suspect]
     Indication: PSORIATIC ARTHROPATHY
     Route: 048
     Dates: start: 20090210, end: 20100201

REACTIONS (7)
  - ABDOMINAL DISTENSION [None]
  - ABDOMINAL PAIN UPPER [None]
  - ASCITES [None]
  - GENERAL PHYSICAL HEALTH DETERIORATION [None]
  - HEPATIC CIRRHOSIS [None]
  - HEPATIC ENZYME INCREASED [None]
  - HEPATOTOXICITY [None]
